FAERS Safety Report 8433046-7 (Version None)
Quarter: 2012Q2

REPORT INFORMATION
  Report Type: 
  Country: None (occurrence: None)
  Receive Date: 20120613
  Receipt Date: 20120607
  Transmission Date: 20120825
  Serious: Yes (Death, Other)
  Sender: FDA-Public Use
  Company Number: MX-BRISTOL-MYERS SQUIBB COMPANY-16674061

PATIENT
  Age: 71 Year
  Sex: Female

DRUGS (2)
  1. IRBESARTAN [Suspect]
     Indication: HYPERTENSION
     Route: 048
  2. LANTUS [Suspect]
     Indication: TYPE 2 DIABETES MELLITUS
     Dosage: 100 IU/ML INJECTABLE, 5 IU IN MORNING NAND 10 IU IN NIGHT
     Route: 058
     Dates: end: 20111110

REACTIONS (3)
  - HYPERGLYCAEMIA [None]
  - OSTEOPOROSIS [None]
  - MYOCARDIAL INFARCTION [None]
